FAERS Safety Report 6318198-7 (Version None)
Quarter: 2009Q3

REPORT INFORMATION
  Report Type: 
  Country: None (occurrence: None)
  Receive Date: 20090821
  Receipt Date: 20090813
  Transmission Date: 20100115
  Serious: Yes (Hospitalization)
  Sender: FDA-Public Use
  Company Number: B0588760A

PATIENT
  Age: 18 Year
  Sex: Female

DRUGS (1)
  1. MALARONE [Suspect]
     Indication: MALARIA PROPHYLAXIS
     Dosage: 1TAB PER DAY
     Route: 048
     Dates: start: 20090715, end: 20090813

REACTIONS (6)
  - ANAEMIA [None]
  - GASTROINTESTINAL DISORDER [None]
  - HAEMOLYSIS [None]
  - PYREXIA [None]
  - RETICULOCYTOSIS [None]
  - THROMBOCYTOPENIA [None]
